FAERS Safety Report 5708718-5 (Version None)
Quarter: 2008Q2

REPORT INFORMATION
  Report Type: 
  Country: None (occurrence: None)
  Receive Date: 20080410
  Receipt Date: 20080402
  Transmission Date: 20081010
  Serious: Yes (Life-Threatening, Hospitalization)
  Sender: FDA-Public Use
  Company Number: 200813142

PATIENT
  Age: 53 Year
  Sex: Female

DRUGS (2)
  1. SANDOGLOBULIN [Suspect]
     Indication: GAMMOPATHY
     Dosage: 10 G, DAILY; IV
     Route: 042
     Dates: start: 20080318, end: 20080318
  2. SANDOGLOBULIN [Suspect]
     Indication: NON-HODGKIN'S LYMPHOMA
     Dosage: 10 G, DAILY; IV
     Route: 042
     Dates: start: 20080318, end: 20080318

REACTIONS (7)
  - BLOOD PRESSURE SYSTOLIC INCREASED [None]
  - BRONCHOSPASM [None]
  - CHEST PAIN [None]
  - CHILLS [None]
  - HYPERTHERMIA [None]
  - MYOCARDIAL INFARCTION [None]
  - TACHYCARDIA [None]
